FAERS Safety Report 8987195 (Version 1)
Quarter: 2012Q4

REPORT INFORMATION
  Report Type: 
  Country: US (occurrence: US)
  Receive Date: 20121227
  Receipt Date: 20121227
  Transmission Date: 20130627
  Serious: No
  Sender: FDA-Public Use
  Company Number: US-BAYER-2012-129704

PATIENT
  Sex: Female

DRUGS (4)
  1. AVELOX [Suspect]
     Dosage: 400 mg, UNK
     Route: 048
  2. XOPENEX [Concomitant]
  3. LIPITOR [Concomitant]
  4. THE GREEN PILL [Concomitant]

REACTIONS (2)
  - Rash macular [Recovering/Resolving]
  - Feeling hot [Recovering/Resolving]
